FAERS Safety Report 9397014 (Version 1)
Quarter: 2013Q3

REPORT INFORMATION
  Report Type: Spontaneous
  Country: US (occurrence: US)
  Receive Date: 20130712
  Receipt Date: 20130712
  Transmission Date: 20140515
  Serious: Yes (Hospitalization, Other)
  Sender: FDA-Public Use
  Company Number: US-ROCHE-1244677

PATIENT
  Sex: Female

DRUGS (1)
  1. KLONOPIN [Suspect]
     Indication: PRODUCT USED FOR UNKNOWN INDICATION
     Route: 064

REACTIONS (8)
  - Heart disease congenital [Unknown]
  - Congenital megacolon [Unknown]
  - Colectomy [Unknown]
  - Suture rupture [Unknown]
  - Colostomy [Recovered/Resolved]
  - Colostomy closure [Unknown]
  - Trisomy 21 [Unknown]
  - Maternal exposure timing unspecified [Unknown]
